FAERS Safety Report 9026244 (Version 1)
Quarter: 2013Q1

REPORT INFORMATION
  Report Type: Spontaneous
  Country: US (occurrence: None)
  Receive Date: 20130108
  Receipt Date: 20130108
  Transmission Date: 20140127
  Serious: Yes (Other)
  Sender: FDA-Public Use
  Company Number: 2012P1068384

PATIENT
  Sex: 0

DRUGS (1)
  1. LIDOCAINE [Suspect]
     Indication: ANAESTHESIA

REACTIONS (3)
  - Corneal flap complication [None]
  - Eye operation complication [None]
  - Impaired healing [None]
